FAERS Safety Report 5281027-7 (Version None)
Quarter: 2007Q1

REPORT INFORMATION
  Report Type: 
  Country: None (occurrence: None)
  Receive Date: 20061229
  Receipt Date: 20060908
  Transmission Date: 20070707
  Serious: Yes (Other)
  Sender: FDA-Public Use
  Company Number: 2006UW16164

PATIENT
  Age: 55 Year
  Sex: Male
  Weight: 128.36 kg

DRUGS (5)
  1. CRESTOR [Suspect]
     Indication: BLOOD CHOLESTEROL INCREASED
     Dosage: 10 MG PO
     Route: 048
     Dates: start: 20060801
  2. GLUCOPHAGE [Concomitant]
  3. AVANDIA [Concomitant]
  4. LANTUS [Concomitant]
  5. BENZAEPER HCT [Concomitant]

REACTIONS (1)
  - TENDONITIS [None]
